FAERS Safety Report 7966403-3 (Version None)
Quarter: 2011Q4

REPORT INFORMATION
  Report Type: 
  Country: None (occurrence: None)
  Receive Date: 20111208
  Receipt Date: 20111130
  Transmission Date: 20120403
  Serious: Yes (Other)
  Sender: FDA-Public Use
  Company Number: US-ASTRAZENECA-2009SE21288

PATIENT
  Age: 56 Year
  Sex: Female

DRUGS (6)
  1. SEROQUEL [Suspect]
     Route: 048
  2. TOPROL-XL [Suspect]
     Indication: BLOOD PRESSURE
     Route: 048
  3. SEROQUEL [Suspect]
     Indication: MENTAL DISORDER
     Route: 048
     Dates: start: 20010101
  4. SEROQUEL [Suspect]
     Route: 048
  5. BUTALBITAL [Concomitant]
     Indication: MIGRAINE
  6. SEROQUEL [Suspect]
     Indication: DEPRESSION
     Route: 048
     Dates: start: 20010101

REACTIONS (13)
  - CONCUSSION [None]
  - OFF LABEL USE [None]
  - HEADACHE [None]
  - MALAISE [None]
  - NIGHTMARE [None]
  - DRUG INEFFECTIVE FOR UNAPPROVED INDICATION [None]
  - INITIAL INSOMNIA [None]
  - NERVOUSNESS [None]
  - SOMNOLENCE [None]
  - NERVE COMPRESSION [None]
  - INSOMNIA [None]
  - FALL [None]
  - FATIGUE [None]
